FAERS Safety Report 9185193 (Version 2)
Quarter: 2013Q4

REPORT INFORMATION
  Report Type: Spontaneous
  Country: GB (occurrence: GB)
  Receive Date: 20130325
  Receipt Date: 20131008
  Transmission Date: 20140711
  Serious: Yes (Other)
  Sender: FDA-Public Use
  Company Number: PHHY2013GB026893

PATIENT
  Age: 68 Year
  Sex: Female
  Weight: 53 kg

DRUGS (4)
  1. ANASTROZOLE [Suspect]
     Indication: BREAST CANCER
     Dosage: 1 MG, QD
     Route: 048
     Dates: start: 201106
  2. ANASTROZOLE [Suspect]
     Dosage: STILL ON
     Route: 048
     Dates: start: 201106
  3. SIMVASTATIN [Concomitant]
     Indication: HYPERLIPIDAEMIA
     Dosage: 40 MG, QD AT NIGHT
     Route: 048
  4. FLECAINIDE [Concomitant]
     Indication: ARRHYTHMIA
     Dosage: 100 MG, BID
     Route: 048

REACTIONS (5)
  - Dementia Alzheimer^s type [Unknown]
  - Cognitive disorder [Unknown]
  - Memory impairment [Not Recovered/Not Resolved]
  - Amnesia [Unknown]
  - Liver function test abnormal [Unknown]
